FAERS Safety Report 13358891 (Version 1)
Quarter: 2017Q1

REPORT INFORMATION
  Report Type: Spontaneous
  Country: US (occurrence: US)
  Receive Date: 20170322
  Receipt Date: 20170322
  Transmission Date: 20170429
  Serious: No
  Sender: FDA-Public Use
  Company Number: US-PFIZER INC-1732833

PATIENT
  Age: 63 Year
  Sex: Male
  Weight: 102.7 kg

DRUGS (1)
  1. PIPERACILLIN AND TAZOBACTAM [Suspect]
     Active Substance: PIPERACILLIN SODIUM\TAZOBACTAM SODIUM
     Indication: INFECTION
     Dosage: 10.55 G, OVER 24 HOURS, FREQ:1DAY, INTERVAL:1
     Route: 042
     Dates: start: 20130406, end: 20130410

REACTIONS (2)
  - Infusion site vesicles [Recovered/Resolved with Sequelae]
  - Blister [Recovered/Resolved with Sequelae]
